FAERS Safety Report 21216253 (Version 1)
Quarter: 2022Q3

REPORT INFORMATION
  Report Type: Spontaneous
  Country: US (occurrence: None)
  Receive Date: 20220815
  Receipt Date: 20220815
  Transmission Date: 20221027
  Serious: Yes (unspecified)
  Sender: FDA-Public Use
  Company Number: None

PATIENT
  Age: 66 Year
  Sex: Female
  Weight: 52.2 kg

DRUGS (6)
  1. SPRAVATO [Suspect]
     Active Substance: ESKETAMINE
     Indication: Depression
     Dosage: FREQUENCY : TWICE A WEEK;?
     Route: 045
     Dates: start: 20220613, end: 20220613
  2. Duloxetine 60 mg once daily by mouth [Concomitant]
  3. Bupropion XL 300 mg once daily by mouth [Concomitant]
  4. Ascorbic acid 1,000 mg once daily by mouth [Concomitant]
  5. Vitamin D3 25 mcg once daily by mouth [Concomitant]
  6. Multivitamin once daily by mouth [Concomitant]

REACTIONS (6)
  - Flushing [None]
  - Nausea [None]
  - Nasopharyngitis [None]
  - Cold sweat [None]
  - Hypertension [None]
  - Vomiting [None]

NARRATIVE: CASE EVENT DATE: 20220613
